FAERS Safety Report 11565829 (Version 1)
Quarter: 2015Q3

REPORT INFORMATION
  Report Type: Spontaneous
  Country: US (occurrence: US)
  Receive Date: 20150916
  Receipt Date: 20150916
  Transmission Date: 20151125
  Serious: No
  Sender: FDA-Public Use
  Company Number: US-ELI_LILLY_AND_COMPANY-US200905002235

PATIENT
  Age: 66 Year
  Sex: Female

DRUGS (1)
  1. FORTEO [Suspect]
     Active Substance: TERIPARATIDE
     Dates: start: 20090507

REACTIONS (6)
  - Nausea [Unknown]
  - Headache [Unknown]
  - Dyspnoea [Unknown]
  - Malaise [Unknown]
  - Vertigo [Unknown]
  - Heart rate increased [Unknown]

NARRATIVE: CASE EVENT DATE: 200905
